FAERS Safety Report 7482199-6 (Version None)
Quarter: 2011Q2

REPORT INFORMATION
  Report Type: 
  Country: None (occurrence: None)
  Receive Date: 20110516
  Receipt Date: 20110510
  Transmission Date: 20111010
  Serious: No
  Sender: FDA-Public Use
  Company Number: US-PFIZER INC-2011084386

PATIENT
  Sex: Female
  Weight: 74.83 kg

DRUGS (6)
  1. LEVAQUIN [Suspect]
     Indication: CYSTITIS
     Dosage: UNK
     Route: 048
  2. AVAPRO [Concomitant]
     Dosage: 150 MG
     Route: 048
  3. PREMARIN [Concomitant]
     Dosage: 0.3 MG
     Route: 048
  4. DIFLUCAN [Suspect]
     Dosage: 100 MG, 2X/DAY
     Route: 048
     Dates: start: 20110101, end: 20110401
  5. DIFLUCAN [Suspect]
     Indication: CANDIDIASIS
     Dosage: 100 MG, 1X/DAY
     Route: 048
     Dates: start: 20110101, end: 20110101
  6. SYNTHROID [Concomitant]
     Dosage: UNK
     Route: 048

REACTIONS (1)
  - DRUG INEFFECTIVE [None]
